FAERS Safety Report 13491268 (Version 3)
Quarter: 2017Q4

REPORT INFORMATION
  Report Type: Spontaneous
  Country: FR (occurrence: FR)
  Receive Date: 20170427
  Receipt Date: 20171010
  Transmission Date: 20180320
  Serious: Yes (Death, Hospitalization, Other)
  Sender: FDA-Public Use
  Company Number: FR-ORION CORPORATION ORION PHARMA-TREX2017-1230

PATIENT
  Age: 89 Year
  Sex: Male
  Weight: 59 kg

DRUGS (4)
  1. AVODART [Concomitant]
     Active Substance: DUTASTERIDE
     Dosage: STRENGTH: 0.5 MG
     Route: 048
     Dates: end: 20170411
  2. ACIDE FOLIQUE ARROW [Concomitant]
     Active Substance: FOLIC ACID
     Dosage: STRENGTH: 5 MG
     Route: 048
     Dates: start: 20150201, end: 20170411
  3. IMETH [Suspect]
     Active Substance: METHOTREXATE SODIUM
     Dosage: STRENGTH: 2.5 MG; EVERY FRIDAY
     Route: 048
     Dates: start: 20160818, end: 20170410
  4. KARDEGIC [Concomitant]
     Active Substance: ASPIRIN DL-LYSINE
     Dosage: STRENGTH: 75 MG
     Route: 048
     Dates: end: 20170411

REACTIONS (8)
  - Asthenia [Unknown]
  - Dehydration [Recovering/Resolving]
  - Malnutrition [Unknown]
  - Decreased appetite [Unknown]
  - Dysphagia [Unknown]
  - Stomatitis [Fatal]
  - Dry mouth [Fatal]
  - Apnoea [Unknown]

NARRATIVE: CASE EVENT DATE: 20170410
